FAERS Safety Report 8433131-X (Version None)
Quarter: 2012Q2

REPORT INFORMATION
  Report Type: 
  Country: None (occurrence: None)
  Receive Date: 20120613
  Receipt Date: 20120608
  Transmission Date: 20120825
  Serious: Yes (Hospitalization)
  Sender: FDA-Public Use
  Company Number: FR-ROCHE-1077096

PATIENT
  Age: 75 Year
  Sex: Female

DRUGS (6)
  1. TRANSIPEG (FRANCE) [Concomitant]
     Route: 065
  2. AUGMENTIN '125' [Suspect]
     Indication: BRONCHITIS
     Route: 042
     Dates: start: 20120512, end: 20120516
  3. LEVEMIR [Concomitant]
     Route: 065
  4. GENTAMICIN [Suspect]
     Indication: BRONCHITIS
     Route: 042
     Dates: start: 20120512, end: 20120516
  5. ROCEPHIN [Suspect]
     Indication: BRONCHITIS
     Route: 042
     Dates: start: 20120509, end: 20120512
  6. CALCIPARINE [Concomitant]
     Route: 065

REACTIONS (1)
  - ACUTE GENERALISED EXANTHEMATOUS PUSTULOSIS [None]
